FAERS Safety Report 14366214 (Version 1)
Quarter: 2018Q1

REPORT INFORMATION
  Report Type: Spontaneous
  Country: FR (occurrence: FR)
  Receive Date: 20180109
  Receipt Date: 20180109
  Transmission Date: 20180509
  Serious: Yes (Hospitalization)
  Sender: FDA-Public Use
  Company Number: FR-CIPLA LTD.-2017FR30380

PATIENT

DRUGS (14)
  1. CARBOPLATIN. [Suspect]
     Active Substance: CARBOPLATIN
     Indication: OVARIAN EPITHELIAL CANCER
     Dosage: 200 MG, UNK
     Route: 041
     Dates: start: 20160916, end: 20171027
  2. AVASTIN [Suspect]
     Active Substance: BEVACIZUMAB
     Indication: OVARIAN EPITHELIAL CANCER
     Dosage: 650 MG, UNK
     Route: 041
     Dates: start: 20161109, end: 20171027
  3. PRIMPERAN [Concomitant]
     Active Substance: METOCLOPRAMIDE HYDROCHLORIDE
     Dosage: UNK, 1 A 2 COMPRIMES 3 FOIS PAR JOUR
     Route: 065
  4. AMLOR [Concomitant]
     Active Substance: AMLODIPINE BESYLATE
     Dosage: 2 DF, DAILY
     Route: 065
  5. METFORMIN [Concomitant]
     Active Substance: METFORMIN HYDROCHLORIDE
     Dosage: 1000 MG, UNK
     Route: 065
  6. PARACETAMOL [Concomitant]
     Active Substance: ACETAMINOPHEN
     Dosage: UNK
     Route: 065
  7. SMECTA [Concomitant]
     Active Substance: MONTMORILLONITE
     Dosage: UNK, 1 A 3 SACHETS PAR JOUR
     Route: 065
  8. GEMCITABINE [Suspect]
     Active Substance: GEMCITABINE\GEMCITABINE HYDROCHLORIDE
     Indication: OVARIAN EPITHELIAL CANCER
     Dosage: 1501 MG, UNK
     Route: 041
     Dates: start: 20161028, end: 20171027
  9. MACROGOL [Concomitant]
     Active Substance: POLYETHYLENE GLYCOLS
     Dosage: UNK
  10. PERINDOPRIL [Concomitant]
     Active Substance: PERINDOPRIL
     Dosage: 2 MG, DAILY
     Route: 065
  11. NORFLOXACINE [Concomitant]
     Active Substance: NORFLOXACIN
     Dosage: 400MG, DAILY
     Route: 065
  12. LANSOPRAZOLE. [Concomitant]
     Active Substance: LANSOPRAZOLE
     Dosage: 15 MG, DAILY
     Route: 065
  13. SPASFON [Concomitant]
     Active Substance: PHLOROGLUCINOL\1,3,5-TRIMETHOXYBENZENE
     Dosage: UNK, 1 A 2 LYOPHILISATS
     Route: 065
  14. SOLUPRED//PREDNISOLONE METASULFOBENZOATE SODIUM [Concomitant]
     Active Substance: PREDNISOLONE SODIUM METAZOATE
     Dosage: 40 MG, 2 COMPRIMES LE MATIN
     Route: 065

REACTIONS (1)
  - Cardiac failure [Unknown]

NARRATIVE: CASE EVENT DATE: 20171031
